FAERS Safety Report 20526222 (Version 1)
Quarter: 2022Q1

REPORT INFORMATION
  Report Type: Spontaneous
  Country: US (occurrence: None)
  Receive Date: 20220225
  Receipt Date: 20220225
  Transmission Date: 20220423
  Serious: Yes (Other)
  Sender: FDA-Public Use
  Company Number: None

PATIENT
  Age: 48 Year
  Sex: Female
  Weight: 81 kg

DRUGS (4)
  1. LORAZEPAM [Suspect]
     Active Substance: LORAZEPAM
     Indication: Obsessive-compulsive disorder
     Dosage: OTHER QUANTITY : 1 TABLET(S);?FREQUENCY : AT BEDTIME;?
     Route: 048
     Dates: start: 20220222, end: 20220224
  2. LORAZEPAM [Suspect]
     Active Substance: LORAZEPAM
     Indication: Panic attack
  3. FLUOXETINE [Concomitant]
     Active Substance: FLUOXETINE HYDROCHLORIDE
  4. VITAMIN D [Concomitant]
     Active Substance: VITAMIN D NOS

REACTIONS (9)
  - Product substitution issue [None]
  - Obsessive-compulsive disorder [None]
  - Anxiety [None]
  - Panic attack [None]
  - Dyspnoea [None]
  - Seizure [None]
  - Tremor [None]
  - Tinnitus [None]
  - Drug ineffective [None]

NARRATIVE: CASE EVENT DATE: 20220224
